FAERS Safety Report 17604236 (Version 1)
Quarter: 2020Q1

REPORT INFORMATION
  Report Type: Spontaneous
  Country: US (occurrence: US)
  Receive Date: 20200330
  Receipt Date: 20200330
  Transmission Date: 20200409
  Serious: Yes (Hospitalization)
  Sender: FDA-Public Use
  Company Number: None

PATIENT
  Age: 5 Year
  Sex: Male

DRUGS (15)
  1. ALBUTEROL NEBULIZER SOLUTION [Concomitant]
     Active Substance: ALBUTEROL
  2. BUDESONIDE NEB [Concomitant]
  3. CLOBAZAM. [Concomitant]
     Active Substance: CLOBAZAM
  4. RISPERIDONE. [Concomitant]
     Active Substance: RISPERIDONE
  5. LORAZEPAM. [Concomitant]
     Active Substance: LORAZEPAM
  6. MONTELUKAST [Concomitant]
     Active Substance: MONTELUKAST SODIUM
  7. PPG 3350 [Concomitant]
  8. EPIDIOLEX [Suspect]
     Active Substance: CANNABIDIOL
     Indication: EPILEPSY
     Route: 048
     Dates: start: 20190425
  9. SULFAMETH/TRIMETHOPRIM [Concomitant]
     Active Substance: SULFAMETHOXAZOLE\TRIMETHOPRIM
  10. FLUOXETINE [Concomitant]
     Active Substance: FLUOXETINE HYDROCHLORIDE
  11. MELATONIN [Concomitant]
     Active Substance: MELATONIN
  12. FLUTICASONE NASAL [Concomitant]
     Active Substance: FLUTICASONE
  13. VIMPAT [Concomitant]
     Active Substance: LACOSAMIDE
  14. ERYTHROMYCIN. [Concomitant]
     Active Substance: ERYTHROMYCIN
  15. LANSOPRAZOLE SUSPENSION [Concomitant]

REACTIONS (7)
  - Pneumonia [None]
  - Poor quality sleep [None]
  - Movement disorder [None]
  - Retching [None]
  - Head banging [None]
  - Constipation [None]
  - Pain [None]

NARRATIVE: CASE EVENT DATE: 20200328
